FAERS Safety Report 16710373 (Version 5)
Quarter: 2020Q2

REPORT INFORMATION
  Report Type: Spontaneous
  Country: US (occurrence: US)
  Receive Date: 20190816
  Receipt Date: 20200413
  Transmission Date: 20200713
  Serious: No
  Sender: FDA-Public Use
  Company Number: US-PFIZER INC-2019348231

PATIENT
  Age: 51 Year
  Sex: Female

DRUGS (1)
  1. XELJANZ [Suspect]
     Active Substance: TOFACITINIB CITRATE
     Indication: RHEUMATOID ARTHRITIS
     Dosage: 5 MG, 2X/DAY
     Route: 048
     Dates: start: 20190810, end: 201912

REACTIONS (10)
  - Dry mouth [Recovering/Resolving]
  - Peripheral swelling [Recovering/Resolving]
  - Joint effusion [Unknown]
  - Pain in extremity [Recovering/Resolving]
  - Urinary tract infection [Recovering/Resolving]
  - Drug ineffective [Unknown]
  - Dry eye [Recovering/Resolving]
  - Musculoskeletal pain [Recovering/Resolving]
  - Blood cholesterol increased [Unknown]
  - Rheumatoid nodule [Unknown]

NARRATIVE: CASE EVENT DATE: 2019
